FAERS Safety Report 6196399-9 (Version None)
Quarter: 2009Q2

REPORT INFORMATION
  Report Type: 
  Country: None (occurrence: None)
  Receive Date: 20090518
  Receipt Date: 20090508
  Transmission Date: 20091009
  Serious: Yes (Hospitalization)
  Sender: FDA-Public Use
  Company Number: CERZ-1000638

PATIENT
  Age: 33 Year
  Sex: Female
  Weight: 89 kg

DRUGS (1)
  1. CEREZYME [Suspect]
     Indication: GAUCHER'S DISEASE
     Dosage: 49 U/KG, Q2W, INTRAVENOUS
     Route: 042
     Dates: start: 20020327

REACTIONS (11)
  - ABORTION INFECTED [None]
  - DRUG EXPOSURE DURING PREGNANCY [None]
  - EYELID OEDEMA [None]
  - FOLLICULITIS [None]
  - HYPERTENSION [None]
  - INTRA-UTERINE CONTRACEPTIVE DEVICE INSERTION [None]
  - IUD MIGRATION [None]
  - OEDEMA PERIPHERAL [None]
  - PREGNANCY [None]
  - PREGNANCY WITH CONTRACEPTIVE DEVICE [None]
  - WEIGHT INCREASED [None]
